FAERS Safety Report 22664699 (Version 5)
Quarter: 2024Q3

REPORT INFORMATION
  Report Type: Spontaneous
  Country: US (occurrence: US)
  Receive Date: 20230703
  Receipt Date: 20240717
  Transmission Date: 20241017
  Serious: No
  Sender: ABBVIE
  Company Number: US-ABBVIE-5312308

PATIENT
  Sex: Female

DRUGS (4)
  1. NAMENDA [Suspect]
     Active Substance: MEMANTINE HYDROCHLORIDE
     Indication: Migraine prophylaxis
     Route: 048
     Dates: start: 20221213
  2. PROPRANOLOL [Concomitant]
     Active Substance: PROPRANOLOL HYDROCHLORIDE
     Indication: Migraine prophylaxis
     Route: 048
     Dates: start: 20211203
  3. VITAMINS [Concomitant]
     Active Substance: VITAMINS
     Indication: Pregnancy
     Route: 048
  4. ACETAMINOPHEN [Concomitant]
     Active Substance: ACETAMINOPHEN
     Indication: Migraine
     Dosage: 1000 MG PM
     Route: 048

REACTIONS (3)
  - Perineal injury [Recovered/Resolved]
  - Maternal exposure during pregnancy [Unknown]
  - Live birth [Unknown]

NARRATIVE: CASE EVENT DATE: 20230620
